FAERS Safety Report 22658806 (Version 1)
Quarter: 2023Q2

REPORT INFORMATION
  Report Type: Spontaneous
  Country: US (occurrence: None)
  Receive Date: 20230629
  Receipt Date: 20230629
  Transmission Date: 20230721
  Serious: Yes (Other)
  Sender: FDA-Public Use
  Company Number: None

PATIENT
  Age: 61 Year
  Sex: Female
  Weight: 72.45 kg

DRUGS (7)
  1. LISINOPRIL [Suspect]
     Active Substance: LISINOPRIL
     Indication: Hypertension
     Dosage: OTHER QUANTITY : 90 TABLET(S);?FREQUENCY : AT BEDTIME;?
     Route: 048
     Dates: start: 20110503, end: 20230521
  2. METFORMIN [Concomitant]
     Active Substance: METFORMIN HYDROCHLORIDE
  3. METOPROLOL [Concomitant]
     Active Substance: METOPROLOL
  4. OMEPRAZOLE [Concomitant]
     Active Substance: OMEPRAZOLE
  5. CETIRIZINE HYDROCHLORIDE [Concomitant]
     Active Substance: CETIRIZINE HYDROCHLORIDE
  6. CYSTEX [Concomitant]
     Active Substance: METHENAMINE\SODIUM SALICYLATE
  7. MONISTAT [Concomitant]
     Active Substance: MICONAZOLE NITRATE

REACTIONS (2)
  - Fungal infection [None]
  - Urinary tract infection [None]

NARRATIVE: CASE EVENT DATE: 20230503
